FAERS Safety Report 7958152-2 (Version None)
Quarter: 2011Q4

REPORT INFORMATION
  Report Type: 
  Country: None (occurrence: None)
  Receive Date: 20111205
  Receipt Date: 20111130
  Transmission Date: 20120403
  Serious: Yes (Life-Threatening, Hospitalization, Other)
  Sender: FDA-Public Use
  Company Number: US-ASTRAZENECA-2011SE44976

PATIENT
  Age: 63 Year
  Sex: Female

DRUGS (10)
  1. PRILOSEC [Suspect]
     Route: 048
     Dates: start: 20110601
  2. NEXIUM [Suspect]
     Route: 048
  3. PEPCID [Concomitant]
  4. GAVISCON [Concomitant]
  5. NEXIUM [Suspect]
     Route: 048
     Dates: start: 20020101
  6. ROLAIDS [Concomitant]
  7. ZANTAC [Concomitant]
  8. CALCIUM CARBONATE [Concomitant]
  9. MYLANTA [Concomitant]
  10. MAGNESIUM HYDROXIDE TAB [Concomitant]

REACTIONS (23)
  - ATRIAL FIBRILLATION [None]
  - ASPIRATION [None]
  - HYPOTENSION [None]
  - DYSPHONIA [None]
  - LOSS OF CONSCIOUSNESS [None]
  - BLOOD PRESSURE DECREASED [None]
  - WEIGHT DECREASED [None]
  - APHAGIA [None]
  - HAEMORRHAGE [None]
  - DRUG DOSE OMISSION [None]
  - VOMITING PROJECTILE [None]
  - BURN OESOPHAGEAL [None]
  - GASTROOESOPHAGEAL REFLUX DISEASE [None]
  - GAIT DISTURBANCE [None]
  - PLEURAL EFFUSION [None]
  - DRUG INEFFECTIVE [None]
  - DYSPNOEA [None]
  - LARYNX IRRITATION [None]
  - CHOKING [None]
  - CHEST PAIN [None]
  - ULCER HAEMORRHAGE [None]
  - HAEMATEMESIS [None]
  - DYSPEPSIA [None]
